FAERS Safety Report 25746185 (Version 2)
Quarter: 2025Q4

REPORT INFORMATION
  Report Type: Spontaneous
  Country: US (occurrence: US)
  Receive Date: 20250901
  Receipt Date: 20251027
  Transmission Date: 20260118
  Serious: Yes (Other)
  Sender: SAMSUNG BIOEPIS
  Company Number: US-SAMSUNG BIOEPIS-SB-2025-29185

PATIENT
  Sex: Male

DRUGS (1)
  1. HADLIMA [Suspect]
     Active Substance: ADALIMUMAB-BWWD
     Indication: Product used for unknown indication
     Dosage: 40MG/0.4ML;

REACTIONS (4)
  - Ankylosing spondylitis [Unknown]
  - Foreign body in skin or subcutaneous tissue [Unknown]
  - Device issue [Unknown]
  - Incorrect dose administered [Unknown]
